FAERS Safety Report 4614403-3 (Version None)
Quarter: 2005Q1

REPORT INFORMATION
  Report Type: 
  Country: None (occurrence: None)
  Receive Date: 20050315
  Receipt Date: 20050228
  Transmission Date: 20050727
  Serious: Yes (Hospitalization)
  Sender: FDA-Public Use
  Company Number: 2005BI000786

PATIENT
  Age: 43 Year
  Sex: Female

DRUGS (35)
  1. AVONEX [Suspect]
     Indication: MULTIPLE SCLEROSIS
     Dosage: 30 UG; QW; IM
     Route: 030
  2. AVONEX [Suspect]
     Indication: MULTIPLE SCLEROSIS
     Dosage: 30 UG; QW; IM
     Route: 030
  3. IMMUNE GLOBULIN INTRAVENOUS (HUMAN) [Concomitant]
  4. ALLEGRA [Concomitant]
  5. ALLEGRA-D [Concomitant]
  6. BACLOFEN [Concomitant]
  7. BETA CAROTINE [Concomitant]
  8. BECONASE [Concomitant]
  9. CLONIDINE [Concomitant]
  10. CRESTOR [Concomitant]
  11. CYCLOBENZAPINE [Concomitant]
  12. GABITRIL [Concomitant]
  13. GLUCOPHAGE [Concomitant]
  14. ASPIRIN [Concomitant]
  15. GAVISCON [Concomitant]
  16. LISINOPRIL [Concomitant]
  17. MAXALT-MLT [Concomitant]
  18. MECLIZINE [Concomitant]
  19. NEURONTIN [Concomitant]
  20. PERCOCET [Concomitant]
  21. PREMARIN [Concomitant]
  22. PROTONIX [Concomitant]
  23. PROVENTIL [Concomitant]
  24. METHADOSE [Concomitant]
  25. PROVIGIL [Concomitant]
  26. SKELAXIN [Concomitant]
  27. OPZOL-XL [Concomitant]
  28. WELLBUTRIN [Concomitant]
  29. LEXAPRO [Concomitant]
  30. CRESTOR [Concomitant]
  31. ANSAID [Concomitant]
  32. RHINOCORT [Concomitant]
  33. LIDOCAINE [Concomitant]
  34. TYLENOL COLD [Concomitant]
  35. ZELNORM [Concomitant]

REACTIONS (16)
  - ARTHROPATHY [None]
  - DIABETES MELLITUS [None]
  - DRUG INTOLERANCE [None]
  - FIBROMYALGIA [None]
  - GAIT DISTURBANCE [None]
  - HYPOTHYROIDISM [None]
  - INTERVERTEBRAL DISC DEGENERATION [None]
  - MENINGITIS ASEPTIC [None]
  - MIGRAINE [None]
  - MORTON'S NEUROMA [None]
  - OESOPHAGEAL SPASM [None]
  - OSCILLOPSIA [None]
  - PAIN [None]
  - SENSORY DISTURBANCE [None]
  - URINARY RETENTION [None]
  - VOMITING [None]
